FAERS Safety Report 20183083 (Version 1)
Quarter: 2021Q4

REPORT INFORMATION
  Report Type: Report from Study
  Country: CA (occurrence: CA)
  Receive Date: 20211214
  Receipt Date: 20211214
  Transmission Date: 20220303
  Serious: Yes (Other)
  Sender: FDA-Public Use
  Company Number: CA-TAKEDA-2021TUS078442

PATIENT
  Age: 23 Year
  Sex: Female

DRUGS (1)
  1. ANTI-INHIBITOR COAGULANT COMPLEX [Suspect]
     Active Substance: ANTI-INHIBITOR COAGULANT COMPLEX
     Indication: Factor IX deficiency
     Dosage: 3500 INTERNATIONAL UNIT, BID
     Route: 065
     Dates: start: 20200504

REACTIONS (2)
  - Traumatic haematoma [Unknown]
  - Splenectomy [Unknown]
